FAERS Safety Report 13337606 (Version 1)
Quarter: 2017Q1

REPORT INFORMATION
  Report Type: Spontaneous
  Country: US (occurrence: US)
  Receive Date: 20170314
  Receipt Date: 20170314
  Transmission Date: 20170428
  Serious: Yes (Other)
  Sender: FDA-Public Use
  Company Number: None

PATIENT
  Age: 66 Year
  Sex: Male

DRUGS (9)
  1. BORTEZIMIB [Concomitant]
  2. PAROXETINE. [Concomitant]
     Active Substance: PAROXETINE
  3. DEXAMETHASONE. [Concomitant]
     Active Substance: DEXAMETHASONE
  4. LENALIDOMIDE [Concomitant]
     Active Substance: LENALIDOMIDE
  5. MULTIVITAMIN [Concomitant]
     Active Substance: VITAMINS
  6. REVLIMID [Suspect]
     Active Substance: LENALIDOMIDE
     Indication: PLASMA CELL MYELOMA
     Dosage: 25MG DAILY X 14 DAYS ORAL
     Route: 048
     Dates: start: 20160922, end: 20170105
  7. ACYCLOVIR. [Concomitant]
     Active Substance: ACYCLOVIR
  8. TAMSULOSIN [Concomitant]
     Active Substance: TAMSULOSIN
  9. FINASTERIDE. [Concomitant]
     Active Substance: FINASTERIDE

REACTIONS (2)
  - Tremor [None]
  - Dysgeusia [None]

NARRATIVE: CASE EVENT DATE: 20170131
